FAERS Safety Report 15415415 (Version 1)
Quarter: 2018Q3

REPORT INFORMATION
  Report Type: Spontaneous
  Country: CN (occurrence: CN)
  Receive Date: 20180921
  Receipt Date: 20180921
  Transmission Date: 20181010
  Serious: Yes (Hospitalization, Other)
  Sender: FDA-Public Use
  Company Number: CN-GILEAD-2018-0363525

PATIENT
  Age: 50 Year
  Sex: Female

DRUGS (4)
  1. LAMIVUDINE. [Suspect]
     Active Substance: LAMIVUDINE
     Indication: HEPATIC CIRRHOSIS
  2. ADEFOVIR DIPIVOXIL. [Suspect]
     Active Substance: ADEFOVIR DIPIVOXIL
     Indication: HEPATIC CIRRHOSIS
  3. LAMIVUDINE. [Suspect]
     Active Substance: LAMIVUDINE
     Indication: HEPATITIS B
     Dosage: 10 MG, QD
     Route: 048
  4. ADEFOVIR DIPIVOXIL. [Suspect]
     Active Substance: ADEFOVIR DIPIVOXIL
     Indication: HEPATITIS B
     Dosage: 10 MG, QD
     Route: 048

REACTIONS (9)
  - Fanconi syndrome acquired [Recovering/Resolving]
  - Fatigue [Recovering/Resolving]
  - Drug resistance [Unknown]
  - Muscular weakness [Recovering/Resolving]
  - Myalgia [Recovering/Resolving]
  - Osteoporosis [Recovering/Resolving]
  - Pain [Recovering/Resolving]
  - Asthenia [Recovering/Resolving]
  - Abdominal distension [Recovering/Resolving]
